FAERS Safety Report 20841865 (Version 1)
Quarter: 2022Q2

REPORT INFORMATION
  Report Type: Other
  Country: US (occurrence: None)
  Receive Date: 20220518
  Receipt Date: 20220518
  Transmission Date: 20220721
  Serious: No
  Sender: FDA-Public Use
  Company Number: US-ROCHE-2967008

PATIENT
  Age: 22 Year
  Sex: Female

DRUGS (3)
  1. VALGANCICLOVIR [Suspect]
     Active Substance: VALGANCICLOVIR
     Indication: Cytomegalovirus infection
     Route: 065
  2. HEPARIN [Concomitant]
     Active Substance: HEPARIN SODIUM
  3. WARFARIN [Concomitant]
     Active Substance: WARFARIN

REACTIONS (2)
  - Off label use [Unknown]
  - No adverse event [Unknown]
